FAERS Safety Report 12211756 (Version 2)
Quarter: 2016Q1

REPORT INFORMATION
  Report Type: Spontaneous
  Country: JP (occurrence: JP)
  Receive Date: 20160325
  Receipt Date: 20160330
  Transmission Date: 20160526
  Serious: Yes (Death, Other)
  Sender: FDA-Public Use
  Company Number: JP-ASTRAZENECA-2016SE31864

PATIENT
  Age: 88 Year
  Sex: Male
  Weight: 42 kg

DRUGS (6)
  1. ELIQUIS [Suspect]
     Active Substance: APIXABAN
     Indication: ATRIAL FIBRILLATION
     Route: 048
     Dates: start: 20150822, end: 20160314
  2. DIART [Suspect]
     Active Substance: AZOSEMIDE
     Indication: CARDIAC FAILURE CHRONIC
     Route: 048
     Dates: start: 20151104, end: 20160314
  3. NEXIUM [Suspect]
     Active Substance: ESOMEPRAZOLE MAGNESIUM
     Indication: GASTROOESOPHAGEAL REFLUX DISEASE
     Route: 048
     Dates: start: 20160311, end: 20160314
  4. PLETAAL [Suspect]
     Active Substance: CILOSTAZOL
     Indication: SINUS NODE DYSFUNCTION
     Route: 048
     Dates: start: 20160312, end: 20160314
  5. TANATRIL [Suspect]
     Active Substance: IMIDAPRIL
     Indication: HYPERTENSION
     Route: 048
     Dates: start: 20160217, end: 20160314
  6. EFIENT [Suspect]
     Active Substance: PRASUGREL HYDROCHLORIDE
     Indication: ANGINA PECTORIS
     Route: 048
     Dates: start: 20160309, end: 20160314

REACTIONS (2)
  - Septic shock [Fatal]
  - Peritonitis [Unknown]

NARRATIVE: CASE EVENT DATE: 20160314
